FAERS Safety Report 15492622 (Version 1)
Quarter: 2018Q4

REPORT INFORMATION
  Report Type: Spontaneous
  Country: BR (occurrence: BR)
  Receive Date: 20181012
  Receipt Date: 20181012
  Transmission Date: 20190205
  Serious: Yes (Other)
  Sender: FDA-Public Use
  Company Number: BR-009507513-1810BRA002935

PATIENT
  Sex: Female

DRUGS (5)
  1. DONAREN [Concomitant]
     Active Substance: TRAZODONE HYDROCHLORIDE
  2. FRONTAL [Concomitant]
     Active Substance: ALPRAZOLAM
     Dosage: 2MG, 2 TABLETS AND A HALF IN THE MORNING AND IN THE AFTERNOON
     Route: 048
     Dates: start: 1998
  3. RIVOTRIL [Concomitant]
     Active Substance: CLONAZEPAM
  4. REMERON SOLTAB [Suspect]
     Active Substance: MIRTAZAPINE
     Route: 048
  5. LORAZEPAM. [Concomitant]
     Active Substance: LORAZEPAM

REACTIONS (4)
  - Dizziness [Not Recovered/Not Resolved]
  - Depression suicidal [Not Recovered/Not Resolved]
  - Drug dependence [Not Recovered/Not Resolved]
  - Pain [Not Recovered/Not Resolved]
